FAERS Safety Report 15588468 (Version 1)
Quarter: 2018Q4

REPORT INFORMATION
  Report Type: Spontaneous
  Country: US (occurrence: US)
  Receive Date: 20181105
  Receipt Date: 20181105
  Transmission Date: 20190205
  Serious: Yes (Hospitalization)
  Sender: FDA-Public Use
  Company Number: US-CELGENEUS-USA-20181100377

PATIENT
  Age: 87 Year
  Sex: Male
  Weight: 71.73 kg

DRUGS (2)
  1. REVLIMID [Suspect]
     Active Substance: LENALIDOMIDE
     Dosage: 10 MILLIGRAM
     Route: 048
     Dates: start: 20171020, end: 20181101
  2. REVLIMID [Suspect]
     Active Substance: LENALIDOMIDE
     Indication: PLASMA CELL MYELOMA
     Dosage: 10 MILLIGRAM
     Route: 048
     Dates: start: 201707

REACTIONS (2)
  - Bronchitis [Recovered/Resolved]
  - Cardiac failure congestive [Recovered/Resolved]

NARRATIVE: CASE EVENT DATE: 20181024
